FAERS Safety Report 9643091 (Version 2)
Quarter: 2013Q4

REPORT INFORMATION
  Report Type: Spontaneous
  Country: BR (occurrence: BR)
  Receive Date: 20131024
  Receipt Date: 20131024
  Transmission Date: 20140711
  Serious: Yes (Other)
  Sender: FDA-Public Use
  Company Number: BR-AMGEN-BRASP2013023860

PATIENT
  Age: 70 Year
  Sex: Female
  Weight: 54 kg

DRUGS (2)
  1. ENBREL [Suspect]
     Indication: RHEUMATOID ARTHRITIS
     Dosage: 50 MG, WEEKLY
     Route: 065
     Dates: start: 20130219, end: 2013
  2. ENBREL [Suspect]
     Dosage: 50 MG, WEEKLY
     Route: 065
     Dates: end: 2013

REACTIONS (5)
  - Hypersensitivity [Unknown]
  - Weight decreased [Not Recovered/Not Resolved]
  - Anal haemorrhage [Recovered/Resolved]
  - Pneumonia [Recovered/Resolved]
  - Injection site haematoma [Unknown]
